FAERS Safety Report 17998608 (Version 1)
Quarter: 2020Q3

REPORT INFORMATION
  Report Type: Spontaneous
  Country: US (occurrence: US)
  Receive Date: 20200708
  Receipt Date: 20200708
  Transmission Date: 20201103
  Serious: No
  Sender: FDA-Public Use
  Company Number: None

PATIENT
  Age: 45 Year
  Sex: Female

DRUGS (1)
  1. ENBREL [Suspect]
     Active Substance: ETANERCEPT
     Indication: PRODUCT USED FOR UNKNOWN INDICATION
     Dosage: 1 SYR Q7D;SQ?
     Route: 058
     Dates: start: 20191207

REACTIONS (2)
  - Intentional dose omission [None]
  - Knee operation [None]

NARRATIVE: CASE EVENT DATE: 20200707
